FAERS Safety Report 4451449-2 (Version None)
Quarter: 2004Q3

REPORT INFORMATION
  Report Type: 
  Country: None (occurrence: None)
  Receive Date: 20040916
  Receipt Date: 20040910
  Transmission Date: 20050211
  Serious: Yes (Hospitalization)
  Sender: FDA-Public Use
  Company Number: AU-ROCHE-380340

PATIENT
  Age: 19 Year
  Sex: Male
  Weight: 80 kg

DRUGS (1)
  1. ROACCUTANE [Suspect]
     Indication: ACNE VARIOLIFORMIS
     Route: 048
     Dates: start: 20000215, end: 20001115

REACTIONS (3)
  - ANXIETY [None]
  - APATHY [None]
  - PSYCHOTIC DISORDER [None]
